FAERS Safety Report 4700251-2 (Version None)
Quarter: 2005Q2

REPORT INFORMATION
  Report Type: 
  Country: None (occurrence: None)
  Receive Date: 20050624
  Receipt Date: 20050624
  Transmission Date: 20051028
  Serious: Yes (Life-Threatening, Hospitalization)
  Sender: FDA-Public Use
  Company Number: None

PATIENT
  Sex: Male
  Weight: 128 kg

DRUGS (3)
  1. XIGRIS [Suspect]
     Indication: CHOLECYSTITIS INFECTIVE
     Dosage: 36MG/12HRS CONTINUOU INTRAVENOU
     Route: 042
     Dates: start: 20050502, end: 20050502
  2. XIGRIS [Suspect]
     Indication: SEPSIS
     Dosage: 36MG/12HRS CONTINUOU INTRAVENOU
     Route: 042
     Dates: start: 20050502, end: 20050502
  3. CLOPIDOGREL BISULFATE [Concomitant]

REACTIONS (6)
  - HAEMATOCRIT DECREASED [None]
  - INCISION SITE COMPLICATION [None]
  - INTRA-ABDOMINAL HAEMORRHAGE [None]
  - POST PROCEDURAL HAEMORRHAGE [None]
  - SURGICAL PROCEDURE REPEATED [None]
  - WOUND SECRETION [None]
